FAERS Safety Report 25802786 (Version 1)
Quarter: 2025Q3

REPORT INFORMATION
  Report Type: Spontaneous
  Country: US (occurrence: US)
  Receive Date: 20250915
  Receipt Date: 20250915
  Transmission Date: 20251021
  Serious: No
  Sender: DR REDDYS
  Company Number: US-DRL-USA-USA/2025/08/013315

PATIENT
  Sex: Female

DRUGS (1)
  1. NICOTINE TRANSDERMAL SYSTEM [Suspect]
     Active Substance: NICOTINE
     Indication: Ex-tobacco user
     Route: 062

REACTIONS (4)
  - Application site rash [Unknown]
  - Application site irritation [Unknown]
  - Wrong technique in product usage process [Unknown]
  - Product adhesion issue [Unknown]
